FAERS Safety Report 9669963 (Version 1)
Quarter: 2013Q4

REPORT INFORMATION
  Report Type: Spontaneous
  Country: US (occurrence: US)
  Receive Date: 20131105
  Receipt Date: 20131105
  Transmission Date: 20140711
  Serious: Yes (Other)
  Sender: FDA-Public Use
  Company Number: US-GLAXOSMITHKLINE-A1048345A

PATIENT
  Age: 54 Year
  Sex: Female

DRUGS (2)
  1. WELLBUTRIN SR [Suspect]
     Indication: MENTAL DISORDER
     Dosage: 150MG UNKNOWN
     Route: 065
     Dates: start: 20091216
  2. LAMICTAL [Suspect]
     Indication: NERVOUS SYSTEM DISORDER
     Dosage: 200MG UNKNOWN
     Route: 065
     Dates: start: 20091216

REACTIONS (1)
  - Brain neoplasm [Not Recovered/Not Resolved]
